FAERS Safety Report 17662711 (Version 1)
Quarter: 2020Q2

REPORT INFORMATION
  Report Type: Spontaneous
  Country: US (occurrence: US)
  Receive Date: 20200413
  Receipt Date: 20200413
  Transmission Date: 20200713
  Serious: Yes (Life-Threatening, Hospitalization)
  Sender: FDA-Public Use
  Company Number: US-TEVA-2020-US-1222336

PATIENT
  Age: 15 Year
  Sex: Male

DRUGS (1)
  1. RISPERIDONE. [Suspect]
     Active Substance: RISPERIDONE
     Indication: AUTISM SPECTRUM DISORDER
     Dosage: INITIAL DOSAGE NOT STATED. TWO WEEKS PRIOR TO THE PRESENTATION, THE DOSE OF RISPERIDONE WAS INCRE
     Route: 065

REACTIONS (6)
  - Respiratory failure [Recovering/Resolving]
  - Hypothermia [Recovering/Resolving]
  - Encephalopathy [Recovering/Resolving]
  - Multiple organ dysfunction syndrome [Recovering/Resolving]
  - Cardiac arrest [Recovering/Resolving]
  - Pulmonary oedema [Recovering/Resolving]
